FAERS Safety Report 8060525-7 (Version None)
Quarter: 2012Q1

REPORT INFORMATION
  Report Type: 
  Country: None (occurrence: None)
  Receive Date: 20120120
  Receipt Date: 20120111
  Transmission Date: 20120608
  Serious: Yes (Other)
  Sender: FDA-Public Use
  Company Number: CHPA2012US001133

PATIENT
  Age: 51 Year
  Sex: Female

DRUGS (3)
  1. EXCEDRIN EXTRA STRENGTH TABLETS [Suspect]
     Indication: HEADACHE
  2. EXCEDRIN ES BACK + BODY [Suspect]
     Dosage: 1 DF, QD
     Route: 048
  3. EXCEDRIN EXTRA STRENGTH TABLETS [Suspect]
     Indication: SINUS DISORDER
     Dosage: 3 OR 4 DF, QD
     Route: 048
     Dates: end: 20120111

REACTIONS (5)
  - DRUG DEPENDENCE [None]
  - DRUG ADMINISTRATION ERROR [None]
  - FATIGUE [None]
  - PAIN [None]
  - PAIN IN EXTREMITY [None]
